FAERS Safety Report 8046193-9 (Version None)
Quarter: 2012Q1

REPORT INFORMATION
  Report Type: 
  Country: None (occurrence: None)
  Receive Date: 20120113
  Receipt Date: 20120113
  Transmission Date: 20120608
  Serious: Yes (Hospitalization)
  Sender: FDA-Public Use
  Company Number: None

PATIENT
  Sex: Female
  Weight: 66.5 kg

DRUGS (3)
  1. TAXOL [Suspect]
     Dosage: 338 MG
  2. BEVACIZUMAB (RHUMAB VEGF) [Suspect]
     Dosage: 997.5 MG
  3. CARBOPLATIN [Suspect]
     Dosage: 750 MG

REACTIONS (5)
  - MENTAL STATUS CHANGES [None]
  - PYREXIA [None]
  - APHASIA [None]
  - CONFUSIONAL STATE [None]
  - DYSGRAPHIA [None]
